FAERS Safety Report 12421532 (Version 2)
Quarter: 2016Q2

REPORT INFORMATION
  Report Type: Report from Study
  Country: AU (occurrence: AU)
  Receive Date: 20160531
  Receipt Date: 20160531
  Transmission Date: 20160815
  Serious: Yes (Hospitalization)
  Sender: FDA-Public Use
  Company Number: AU-ABBVIE-16P-008-1633345-00

PATIENT
  Age: 77 Year
  Sex: Male

DRUGS (4)
  1. LEVODOPA/CARBIDOPA [Concomitant]
     Active Substance: CARBIDOPA\LEVODOPA
     Indication: PARKINSON^S DISEASE
     Route: 048
     Dates: end: 20160524
  2. DUODOPA [Suspect]
     Active Substance: CARBIDOPA\LEVODOPA
     Indication: PARKINSON^S DISEASE
     Dosage: MORNING DOSE 10ML, CONTINUOUS RATE OF 4.4ML/HR
     Route: 050
     Dates: start: 20160504
  3. DUODOPA [Suspect]
     Active Substance: CARBIDOPA\LEVODOPA
     Dosage: MORNING DOSE 8ML, CONTINUOUS RATE OF 4.0ML/HR
     Route: 050
     Dates: start: 20160519
  4. DUODOPA [Suspect]
     Active Substance: CARBIDOPA\LEVODOPA
     Dosage: MORNING DOSE 8ML, CONTINUOUS RATE OF 4.0ML/HR
     Route: 050
     Dates: start: 20160517, end: 20160519

REACTIONS (16)
  - Panic attack [Unknown]
  - Dyskinesia [Recovered/Resolved]
  - Cognitive disorder [Recovered/Resolved]
  - Tremor [Recovered/Resolved]
  - Chest pain [Unknown]
  - Dyspnoea [Not Recovered/Not Resolved]
  - Cough [Unknown]
  - Dyskinesia [Recovering/Resolving]
  - Anxiety [Recovering/Resolving]
  - Dyspnoea [Not Recovered/Not Resolved]
  - Tachypnoea [Unknown]
  - Productive cough [Unknown]
  - Stoma site discharge [Unknown]
  - Tremor [Unknown]
  - Stoma site infection [Recovering/Resolving]
  - Cognitive disorder [Unknown]

NARRATIVE: CASE EVENT DATE: 201605
